FAERS Safety Report 4716418-3 (Version None)
Quarter: 2005Q3

REPORT INFORMATION
  Report Type: 
  Country: None (occurrence: None)
  Receive Date: 20050719
  Receipt Date: 20020521
  Transmission Date: 20060218
  Serious: No
  Sender: FDA-Public Use
  Company Number: US-BRISTOL-MYERS SQUIBB COMPANY-11870003

PATIENT
  Age: 43 Year
  Sex: Male
  Weight: 95 kg

DRUGS (4)
  1. PROLIXIN DECANOATE [Suspect]
     Indication: SCHIZOPHRENIA
     Dosage: INJECTION FOR ^SEVERAL MONTHS^;BEGAN TAKING 1 CC INJECTION Q14D SHORTLY AFTER 21-MAY-02
  2. RISPERDAL [Concomitant]
  3. ZYPREXA [Concomitant]
     Dosage: FOR A SHORT TIME
  4. COGENTIN [Concomitant]
     Dosage: ^FOR MANY YEARS^

REACTIONS (3)
  - FATIGUE [None]
  - SOMNOLENCE [None]
  - TREMOR [None]
